FAERS Safety Report 19985983 (Version 2)
Quarter: 2021Q4

REPORT INFORMATION
  Report Type: Report from Study
  Country: MX (occurrence: MX)
  Receive Date: 20211022
  Receipt Date: 20211116
  Transmission Date: 20220303
  Serious: Yes (Other)
  Sender: FDA-Public Use
  Company Number: MX-NOVARTISPH-NVSC2021MX240359

PATIENT
  Sex: Male
  Weight: 88 kg

DRUGS (3)
  1. METFORMIN HYDROCHLORIDE\VILDAGLIPTIN [Suspect]
     Active Substance: METFORMIN HYDROCHLORIDE\VILDAGLIPTIN
     Indication: Type 2 diabetes mellitus
     Dosage: 2 DF, BID, (50/1000 MG) (10 YEARS AGO APPROXIMATELY)
     Route: 048
  2. INSULIN NOS [Concomitant]
     Active Substance: INSULIN NOS
     Indication: Diabetes mellitus
     Dosage: 16 IU IN MORNING (10 YEARS AGO)
     Route: 059
  3. INSULIN NOS [Concomitant]
     Active Substance: INSULIN NOS
     Dosage: 8 IU AT NIGHT
     Route: 059

REACTIONS (5)
  - Choroidal effusion [Recovered/Resolved]
  - Visual impairment [Not Recovered/Not Resolved]
  - Diabetic neuropathy [Not Recovered/Not Resolved]
  - Blindness unilateral [Not Recovered/Not Resolved]
  - Blood glucose increased [Not Recovered/Not Resolved]
